FAERS Safety Report 9178836 (Version 1)
Quarter: 2012Q4

REPORT INFORMATION
  Report Type: 
  Country: IL (occurrence: IL)
  Receive Date: 20121029
  Receipt Date: 20121029
  Transmission Date: 20130627
  Serious: Yes (Other)
  Sender: FDA-Public Use
  Company Number: IL-ROCHE-1146869

PATIENT

DRUGS (2)
  1. BEVACIZUMAB [Suspect]
     Indication: AGE-RELATED MACULAR DEGENERATION
     Dosage: 1.25 mg/0.05 mL
     Route: 050
  2. BEVACIZUMAB [Suspect]
     Indication: OFF LABEL USE

REACTIONS (13)
  - Iridocyclitis [Unknown]
  - Conjunctivitis infective [Unknown]
  - Conjunctival haemorrhage [Unknown]
  - Corneal erosion [Unknown]
  - Retinal haemorrhage [Unknown]
  - Optic ischaemic neuropathy [Unknown]
  - Vitreous floaters [Unknown]
  - Macular fibrosis [Unknown]
  - Vitreous detachment [Unknown]
  - Amaurosis fugax [Unknown]
  - Herpes zoster ophthalmic [Unknown]
  - Ocular hypertension [Unknown]
  - Glaucoma [Unknown]
